FAERS Safety Report 23530221 (Version 3)
Quarter: 2024Q1

REPORT INFORMATION
  Report Type: Report from Study
  Country: CA (occurrence: CA)
  Receive Date: 20240216
  Receipt Date: 20240305
  Transmission Date: 20240409
  Serious: Yes (Hospitalization, Other)
  Sender: FDA-Public Use
  Company Number: CA-ABBVIE-5639108

PATIENT
  Sex: Female

DRUGS (2)
  1. SKYRIZI [Suspect]
     Active Substance: RISANKIZUMAB-RZAA
     Indication: Crohn^s disease
     Route: 058
     Dates: start: 20231103
  2. SKYRIZI [Suspect]
     Active Substance: RISANKIZUMAB-RZAA
     Indication: Crohn^s disease

REACTIONS (12)
  - Hospitalisation [Unknown]
  - Fear of injection [Unknown]
  - Thirst [Unknown]
  - Hyperhidrosis [Unknown]
  - Unevaluable event [Recovered/Resolved]
  - Pallor [Unknown]
  - Dizziness [Unknown]
  - Vomiting [Unknown]
  - Syncope [Recovered/Resolved]
  - Malaise [Unknown]
  - Unresponsive to stimuli [Recovered/Resolved]
  - Feeling hot [Unknown]

NARRATIVE: CASE EVENT DATE: 20240209
